FAERS Safety Report 5941427-6 (Version None)
Quarter: 2008Q4

REPORT INFORMATION
  Report Type: 
  Country: None (occurrence: None)
  Receive Date: 20081103
  Receipt Date: 20081103
  Transmission Date: 20090506
  Serious: Yes (Other)
  Sender: FDA-Public Use
  Company Number: None

PATIENT
  Age: 22 Year
  Sex: Female
  Weight: 56.6996 kg

DRUGS (1)
  1. ON-THE-SPOT ACNE TREATMENT 2.5% NEUTROGENA [Suspect]
     Indication: ACNE
     Dosage: SMALL -5-7 SPOTS- TOP
     Route: 061
     Dates: start: 20081101, end: 20081101

REACTIONS (3)
  - DRUG HYPERSENSITIVITY [None]
  - PHARYNGEAL OEDEMA [None]
  - SWOLLEN TONGUE [None]
